FAERS Safety Report 11911002 (Version 1)
Quarter: 2016Q1

REPORT INFORMATION
  Report Type: Spontaneous
  Country: None (occurrence: None)
  Receive Date: 20160111
  Receipt Date: 20160111
  Transmission Date: 20160526
  Serious: No
  Sender: FDA-Public Use
  Company Number: None

PATIENT
  Sex: Male

DRUGS (1)
  1. METFORMIN [Suspect]
     Active Substance: METFORMIN HYDROCHLORIDE

REACTIONS (8)
  - Depressed level of consciousness [None]
  - Weight fluctuation [None]
  - Neuropathy peripheral [None]
  - Underweight [None]
  - Pancreatic disorder [None]
  - Blood glucose decreased [None]
  - Drug hypersensitivity [None]
  - Blood glucose increased [None]
